FAERS Safety Report 11242893 (Version 1)
Quarter: 2015Q3

REPORT INFORMATION
  Report Type: Spontaneous
  Country: US (occurrence: None)
  Receive Date: 20150702
  Receipt Date: 20150702
  Transmission Date: 20151125
  Serious: Yes (Life-Threatening, Other)
  Sender: FDA-Public Use
  Company Number: 001938409A

PATIENT
  Age: 22 Year
  Sex: Female

DRUGS (1)
  1. PROACTIVPLUS SKIN SMOOTHING EXFOLIATOR [Suspect]
     Active Substance: BENZOYL PEROXIDE
     Indication: ACNE
     Dosage: DERMAL
     Dates: start: 20150526, end: 20150529

REACTIONS (2)
  - Rash [None]
  - Throat tightness [None]

NARRATIVE: CASE EVENT DATE: 20150529
